FAERS Safety Report 4951320-3 (Version None)
Quarter: 2006Q1

REPORT INFORMATION
  Report Type: 
  Country: None (occurrence: None)
  Receive Date: 20060317
  Receipt Date: 20060301
  Transmission Date: 20060701
  Serious: Yes (Disabling, Other)
  Sender: FDA-Public Use
  Company Number: GB200512003861

PATIENT
  Age: 33 Year
  Sex: Female

DRUGS (1)
  1. YENTREVE(DULOXETINE HYDOCHLORIDE) CAPSULE [Suspect]
     Dosage: SEE IMAGE
     Route: 048
     Dates: start: 20051001

REACTIONS (11)
  - ANOREXIA [None]
  - ANORGASMIA [None]
  - CONSTIPATION [None]
  - DEPRESSION [None]
  - DRUG INEFFECTIVE [None]
  - FATIGUE [None]
  - INSOMNIA [None]
  - LOSS OF LIBIDO [None]
  - NAUSEA [None]
  - NIGHTMARE [None]
  - SUICIDAL IDEATION [None]
